FAERS Safety Report 16283682 (Version 2)
Quarter: 2019Q2

REPORT INFORMATION
  Report Type: Report from Study
  Country: US (occurrence: US)
  Receive Date: 20190507
  Receipt Date: 20190531
  Transmission Date: 20190711
  Serious: Yes (Death, Hospitalization)
  Sender: FDA-Public Use
  Company Number: US-ACTELION-A-NJ2018-176038

PATIENT
  Age: 71 Year
  Sex: Male
  Weight: 82.09 kg

DRUGS (5)
  1. ADCIRCA [Concomitant]
     Active Substance: TADALAFIL
  2. OPSUMIT [Suspect]
     Active Substance: MACITENTAN
     Indication: PULMONARY ARTERIAL HYPERTENSION
     Dosage: 10 MG, QD
     Route: 048
  3. DILTIAZEM. [Concomitant]
     Active Substance: DILTIAZEM
  4. OPSUMIT [Suspect]
     Active Substance: MACITENTAN
     Dosage: 10 MG, QD
     Route: 048
  5. REMODULIN [Concomitant]
     Active Substance: TREPROSTINIL

REACTIONS (14)
  - Death [Fatal]
  - Weight decreased [Unknown]
  - Catheter site pain [Unknown]
  - Diarrhoea [Unknown]
  - Arthralgia [Unknown]
  - Catheter site infection [Unknown]
  - Asthenia [Unknown]
  - Catheter site discharge [Recovering/Resolving]
  - Pulmonary arterial hypertension [Unknown]
  - Fluid overload [Unknown]
  - Fluid retention [Unknown]
  - Catheter placement [Unknown]
  - Right ventricular failure [Unknown]
  - Respiratory failure [Unknown]

NARRATIVE: CASE EVENT DATE: 20190429
